FAERS Safety Report 15185344 (Version 1)
Quarter: 2018Q3

REPORT INFORMATION
  Report Type: Report from Study
  Country: LT (occurrence: LT)
  Receive Date: 20180723
  Receipt Date: 20180723
  Transmission Date: 20181010
  Serious: Yes (Other)
  Sender: FDA-Public Use
  Company Number: LT-SHIRE-LT201621110

PATIENT

DRUGS (1)
  1. RECOMBINATE [Suspect]
     Active Substance: ANTIHEMOPHILIC FACTOR, HUMAN RECOMBINANT
     Indication: HAEMOPHILIA
     Dosage: 2000 IU, AS REQ^D EVERY HOUR FOR 2?5 DAYS
     Route: 065

REACTIONS (3)
  - Epistaxis [Unknown]
  - Musculoskeletal deformity [Unknown]
  - Arthralgia [Unknown]

NARRATIVE: CASE EVENT DATE: 20160810
